FAERS Safety Report 14094294 (Version 1)
Quarter: 2017Q4

REPORT INFORMATION
  Report Type: Spontaneous
  Country: US (occurrence: US)
  Receive Date: 20171016
  Receipt Date: 20171016
  Transmission Date: 20180321
  Serious: No
  Sender: FDA-Public Use
  Company Number: US-CELGENEUS-USA-20171003697

PATIENT
  Sex: Female

DRUGS (2)
  1. OTEZLA [Suspect]
     Active Substance: APREMILAST
     Indication: PSORIASIS
     Route: 048
  2. TALTZ [Concomitant]
     Active Substance: IXEKIZUMAB
     Indication: PRODUCT USED FOR UNKNOWN INDICATION
     Route: 065

REACTIONS (1)
  - Malaise [Recovered/Resolved]
